FAERS Safety Report 24917317 (Version 1)
Quarter: 2025Q1

REPORT INFORMATION
  Report Type: Spontaneous
  Country: US (occurrence: None)
  Receive Date: 20250202
  Receipt Date: 20250202
  Transmission Date: 20250409
  Serious: Yes (Disabling)
  Sender: FDA-CTU
  Company Number: None

PATIENT
  Age: 70 Year
  Sex: Female
  Weight: 69.75 kg

DRUGS (13)
  1. TEPEZZA [Suspect]
     Active Substance: TEPROTUMUMAB-TRBW
     Indication: Endocrine ophthalmopathy
     Route: 042
     Dates: start: 20240711, end: 20241211
  2. DULOXETINE [Concomitant]
     Active Substance: DULOXETINE
  3. ALPRAZOLAM [Concomitant]
     Active Substance: ALPRAZOLAM
  4. ROSUVASTATIN [Concomitant]
     Active Substance: ROSUVASTATIN
  5. LEVOTHYROXINE [Concomitant]
     Active Substance: LEVOTHYROXINE
  6. TRELEGY ELLIPTA [Concomitant]
     Active Substance: FLUTICASONE FUROATE\UMECLIDINIUM BROMIDE\VILANTEROL TRIFENATATE
  7. BENZONATATE [Concomitant]
     Active Substance: BENZONATATE
  8. ROPINIROLE [Concomitant]
     Active Substance: ROPINIROLE
  9. TAVABOROLE [Concomitant]
     Active Substance: TAVABOROLE
  10. VALSARTAN [Concomitant]
     Active Substance: VALSARTAN
  11. Calcium w/D [Concomitant]
  12. Vitamin D3 + K2 [Concomitant]
  13. MAGNESIUM CITRATE [Concomitant]
     Active Substance: MAGNESIUM CITRATE

REACTIONS (4)
  - Muscle spasms [None]
  - Fatigue [None]
  - Headache [None]
  - Nail disorder [None]

NARRATIVE: CASE EVENT DATE: 20240901
